FAERS Safety Report 4688411-0 (Version None)
Quarter: 2005Q2

REPORT INFORMATION
  Report Type: 
  Country: None (occurrence: None)
  Receive Date: 20050610
  Receipt Date: 20050610
  Transmission Date: 20051028
  Serious: Yes (Other)
  Sender: FDA-Public Use
  Company Number: None

PATIENT
  Sex: Female

DRUGS (1)
  1. ULTRAVIST 300 [Suspect]
     Indication: ABDOMINAL PAIN
     Dosage: 95 ML    ONCE    INTRAVENOU
     Route: 042
     Dates: start: 20050522, end: 20050522

REACTIONS (2)
  - CONDITION AGGRAVATED [None]
  - URTICARIA [None]
